FAERS Safety Report 8548807-3 (Version None)
Quarter: 2012Q3

REPORT INFORMATION
  Report Type: 
  Country: None (occurrence: None)
  Receive Date: 20120730
  Receipt Date: 20120726
  Transmission Date: 20120928
  Serious: Yes (Life-Threatening, Hospitalization)
  Sender: FDA-Public Use
  Company Number: US-US-EMD SERONO, INC.-7145458

PATIENT
  Sex: Male

DRUGS (3)
  1. REBIF [Suspect]
     Indication: MULTIPLE SCLEROSIS
     Route: 058
     Dates: start: 20120321
  2. TYLENOL [Concomitant]
     Indication: PREMEDICATION
  3. INSULIN [Concomitant]
     Indication: PRODUCT USED FOR UNKNOWN INDICATION

REACTIONS (10)
  - HEADACHE [None]
  - BLOOD PRESSURE INCREASED [None]
  - RENAL DISORDER [None]
  - CHEST PAIN [None]
  - SHOCK [None]
  - JOINT INJURY [None]
  - NIGHT SWEATS [None]
  - ABDOMINAL TENDERNESS [None]
  - HAEMORRHAGE [None]
  - INJECTION SITE ERYTHEMA [None]
